FAERS Safety Report 5151878-8 (Version None)
Quarter: 2006Q4

REPORT INFORMATION
  Report Type: 
  Country: None (occurrence: None)
  Receive Date: 20061109
  Receipt Date: 20061027
  Transmission Date: 20070319
  Serious: Yes (Hospitalization, Other)
  Sender: FDA-Public Use
  Company Number: 2006129833

PATIENT
  Age: 43 Year
  Sex: Male
  Weight: 45.4 kg

DRUGS (13)
  1. GABAPENTIN [Suspect]
     Indication: EPILEPSY
     Dosage: 1800 MG (3 IN 1 D), ORAL
     Route: 048
     Dates: start: 20061016, end: 20061024
  2. ALEVIATION (PHENYTOIN) [Concomitant]
  3. TEGRETOL [Concomitant]
  4. CLOBAZAM (CLOBAZAM) [Concomitant]
  5. PRIMIDONE [Concomitant]
  6. FAMOTIDINE [Concomitant]
  7. CLEANAL (FUDOSTEINE) [Concomitant]
  8. LEVOTHYROXINE SODIUM [Concomitant]
  9. SENNOSIDES (SENNOSIDE A+B) [Concomitant]
  10. MILMAG (MAGNESIUM HYDROXIDE) [Concomitant]
  11. ZONISAMIDE [Concomitant]
  12. DEPAS (ETIZOLAM) [Concomitant]
  13. NEMBUTAL [Concomitant]

REACTIONS (4)
  - CONDITION AGGRAVATED [None]
  - CONVULSION [None]
  - LIFE SUPPORT [None]
  - MYOCLONIC EPILEPSY [None]
